FAERS Safety Report 6480850-0 (Version None)
Quarter: 2009Q4

REPORT INFORMATION
  Report Type: 
  Country: None (occurrence: None)
  Receive Date: 20091203
  Receipt Date: 20091118
  Transmission Date: 20100525
  Serious: Yes (Hospitalization)
  Sender: FDA-Public Use
  Company Number: AUR-APL-2009-01323

PATIENT
  Age: 59 Year
  Sex: Female
  Weight: 113 kg

DRUGS (6)
  1. HYDROCHLOROTHIAZIDE [Suspect]
     Indication: HYPERTENSION
     Dosage: 25MG, DAILY, ORAL
     Route: 048
     Dates: start: 20080408, end: 20091005
  2. CELECOXIB [Suspect]
     Indication: OSTEOARTHRITIS
     Dosage: ORAL
     Route: 048
     Dates: start: 20090422
  3. IBUPROFEN [Suspect]
     Indication: OSTEOARTHRITIS
     Dosage: ORAL
     Route: 048
     Dates: start: 20090422
  4. NAPROXEN [Suspect]
     Indication: OSTEOARTHRITIS
     Dosage: ORAL
     Route: 048
     Dates: start: 20090422
  5. PLACEBO CAPSULE HARD [Suspect]
     Indication: OSTEOARTHRITIS
     Dosage: ORAL
     Route: 048
     Dates: start: 20090422
  6. NEXIUM [Concomitant]

REACTIONS (1)
  - NEPHROLITHIASIS [None]
